FAERS Safety Report 9541464 (Version 1)
Quarter: 2013Q3

REPORT INFORMATION
  Report Type: Spontaneous
  Country: IT (occurrence: IT)
  Receive Date: 20130923
  Receipt Date: 20130923
  Transmission Date: 20140515
  Serious: Yes (Other)
  Sender: FDA-Public Use
  Company Number: IT-BRISTOL-MYERS SQUIBB COMPANY-19437938

PATIENT
  Sex: 0

DRUGS (1)
  1. REYATAZ [Suspect]

REACTIONS (1)
  - Otorhinolaryngological surgery [Unknown]
